FAERS Safety Report 17591659 (Version 2)
Quarter: 2020Q2

REPORT INFORMATION
  Report Type: Spontaneous
  Country: TR (occurrence: TR)
  Receive Date: 20200327
  Receipt Date: 20200402
  Transmission Date: 20200713
  Serious: Yes (Other)
  Sender: FDA-Public Use
  Company Number: NVSC2020TR085828

PATIENT
  Age: 63 Year
  Sex: Male

DRUGS (3)
  1. AZILET [Concomitant]
     Indication: PRODUCT USED FOR UNKNOWN INDICATION
     Dosage: UNK UNK, QID
     Route: 065
  2. STALEVO [Suspect]
     Active Substance: CARBIDOPA\ENTACAPONE\LEVODOPA
     Indication: PARKINSON^S DISEASE
     Route: 065
  3. P.K MERZ [Concomitant]
     Indication: PRODUCT USED FOR UNKNOWN INDICATION
     Dosage: 150 MG, QID
     Route: 065

REACTIONS (6)
  - Metastases to bone [Unknown]
  - Prostate cancer [Unknown]
  - Drug ineffective [Unknown]
  - Fall [Unknown]
  - Blood count abnormal [Unknown]
  - Gait disturbance [Unknown]
